FAERS Safety Report 13005781 (Version 1)
Quarter: 2016Q4

REPORT INFORMATION
  Report Type: Spontaneous
  Country: FR (occurrence: FR)
  Receive Date: 20161207
  Receipt Date: 20161207
  Transmission Date: 20170207
  Serious: Yes (Death)
  Sender: FDA-Public Use
  Company Number: FR-PFIZER INC-2016559956

PATIENT
  Age: 65 Year
  Sex: Female

DRUGS (4)
  1. MELPHALAN [Suspect]
     Active Substance: MELPHALAN
     Indication: TRANSPLANT
     Dosage: UNK
     Route: 042
     Dates: start: 20160909, end: 20160914
  2. ETOPOSIDE. [Suspect]
     Active Substance: ETOPOSIDE
     Indication: TRANSPLANT
     Dosage: UNK
     Route: 042
     Dates: start: 20160909, end: 20160914
  3. BICNU [Suspect]
     Active Substance: CARMUSTINE
     Indication: TRANSPLANT
     Dosage: UNK
     Route: 042
     Dates: start: 20160909, end: 20160914
  4. ARACYTINE [Suspect]
     Active Substance: CYTARABINE
     Indication: TRANSPLANT
     Dosage: UNK
     Route: 042
     Dates: start: 20160909, end: 20160914

REACTIONS (4)
  - Intestinal ischaemia [Fatal]
  - Necrotising oesophagitis [Fatal]
  - Ischaemic gastritis [Fatal]
  - Hepatic ischaemia [Fatal]

NARRATIVE: CASE EVENT DATE: 201609
